FAERS Safety Report 4390756-9 (Version None)
Quarter: 2004Q3

REPORT INFORMATION
  Report Type: 
  Country: None (occurrence: None)
  Receive Date: 20040706
  Receipt Date: 20040706
  Transmission Date: 20050211
  Serious: Yes (Hospitalization)
  Sender: FDA-Public Use
  Company Number: None

PATIENT
  Age: 54 Year
  Sex: Female
  Weight: 137.9 kg

DRUGS (11)
  1. VANCOMYCIN [Suspect]
     Indication: STAPHYLOCOCCAL INFECTION
     Dosage: 1000 MG Q 12 HOURS IVPB
     Route: 042
     Dates: start: 20040626, end: 20040630
  2. OXYCONTIN [Concomitant]
  3. LEVOTHYROXINE SODIUM [Concomitant]
  4. TYLOX [Concomitant]
  5. EFFEXOR XR [Concomitant]
  6. MEGESTROL [Concomitant]
  7. ANZEMET [Concomitant]
  8. SENOKOT [Concomitant]
  9. BENZAPRIL [Concomitant]
  10. TOPROL-XL [Concomitant]
  11. NOVOLIN R [Concomitant]

REACTIONS (1)
  - RENAL IMPAIRMENT [None]
